FAERS Safety Report 19795626 (Version 1)
Quarter: 2021Q3

REPORT INFORMATION
  Report Type: Spontaneous
  Country: US (occurrence: US)
  Receive Date: 20210904
  Receipt Date: 20210904
  Transmission Date: 20211014
  Serious: No
  Sender: FDA-Public Use
  Company Number: None

PATIENT
  Sex: Male
  Weight: 91.08 kg

DRUGS (12)
  1. VITAMIN B12 [Concomitant]
     Active Substance: CYANOCOBALAMIN
  2. ERGOCALCIFEROL. [Concomitant]
     Active Substance: ERGOCALCIFEROL
  3. ABIRATERONE. [Suspect]
     Active Substance: ABIRATERONE ACETATE
     Indication: PROSTATE CANCER
     Route: 048
     Dates: start: 20200723, end: 20210903
  4. ATORVASTATIN [Concomitant]
     Active Substance: ATORVASTATIN
  5. CENTRUM SILVER 50+ MEN [Concomitant]
  6. MAGNESIUM OX [Concomitant]
  7. OMEPRAZOLE. [Concomitant]
     Active Substance: OMEPRAZOLE
  8. MELATONIN [Concomitant]
     Active Substance: MELATONIN
  9. CARVEDILOL. [Concomitant]
     Active Substance: CARVEDILOL
  10. LOSARTAN. [Concomitant]
     Active Substance: LOSARTAN
  11. CALCIUM + D [Concomitant]
     Active Substance: CALCIUM\VITAMIN D
  12. COENZYME Q10 [Concomitant]
     Active Substance: DIETARY SUPPLEMENT\UBIDECARENONE

REACTIONS (1)
  - Disease progression [None]
